FAERS Safety Report 13737146 (Version 2)
Quarter: 2017Q3

REPORT INFORMATION
  Report Type: Spontaneous
  Country: US (occurrence: US)
  Receive Date: 20170710
  Receipt Date: 20170711
  Transmission Date: 20171127
  Serious: Yes (Other)
  Sender: FDA-Public Use
  Company Number: US-JNJFOC-20170704681

PATIENT
  Age: 31 Year
  Sex: Female

DRUGS (1)
  1. STELARA [Suspect]
     Active Substance: USTEKINUMAB
     Indication: MULTIPLE SCLEROSIS
     Route: 058

REACTIONS (4)
  - Hypoaesthesia [Unknown]
  - Hemiplegia [Unknown]
  - Off label use [Unknown]
  - Product use in unapproved indication [Unknown]
